FAERS Safety Report 24032857 (Version 1)
Quarter: 2024Q3

REPORT INFORMATION
  Report Type: Spontaneous
  Country: US (occurrence: US)
  Receive Date: 20240701
  Receipt Date: 20240701
  Transmission Date: 20241017
  Serious: No
  Sender: AMGEN
  Company Number: US-AMGEN-USASP2024125231

PATIENT
  Age: 61 Year
  Sex: Male

DRUGS (3)
  1. RITUXIMAB [Suspect]
     Active Substance: RITUXIMAB
     Indication: Antisynthetase syndrome
     Dosage: UNK
     Route: 065
  2. METHYLPREDNISOLONE [Concomitant]
     Active Substance: METHYLPREDNISOLONE
     Indication: Antisynthetase syndrome
     Dosage: UNK
     Route: 065
  3. TACROLIMUS [Concomitant]
     Active Substance: TACROLIMUS
     Indication: Antisynthetase syndrome
     Dosage: UNK
     Route: 065

REACTIONS (2)
  - Drug effective for unapproved indication [Unknown]
  - Off label use [Unknown]
